FAERS Safety Report 5874440-8 (Version None)
Quarter: 2008Q3

REPORT INFORMATION
  Report Type: 
  Country: None (occurrence: None)
  Receive Date: 20080908
  Receipt Date: 20080829
  Transmission Date: 20090109
  Serious: Yes (Hospitalization)
  Sender: FDA-Public Use
  Company Number: CL-PFIZER INC-2008071669

PATIENT
  Age: 45 Year
  Sex: Male

DRUGS (5)
  1. CELEBRA [Suspect]
     Indication: BACK PAIN
     Route: 048
     Dates: start: 20080810, end: 20080810
  2. VALSARTAN [Concomitant]
  3. HYDROCHLOROTHIAZIDE [Concomitant]
  4. ADALAT [Concomitant]
  5. DILATREND [Concomitant]

REACTIONS (1)
  - RENAL INFARCT [None]
